FAERS Safety Report 8353596-1 (Version None)
Quarter: 2012Q2

REPORT INFORMATION
  Report Type: 
  Country: None (occurrence: None)
  Receive Date: 20120511
  Receipt Date: 20110719
  Transmission Date: 20120825
  Serious: No
  Sender: FDA-Public Use
  Company Number: US-GLAXOSMITHKLINE-A0937352A

PATIENT
  Age: 68 Year
  Sex: Female

DRUGS (5)
  1. XELODA [Concomitant]
  2. LEVOTHYROXINE SODIUM [Concomitant]
  3. TYKERB [Suspect]
     Indication: BREAST CANCER
     Dosage: 5TAB PER DAY
     Route: 048
     Dates: start: 20110501
  4. XELODA [Suspect]
  5. ATENOLOL [Concomitant]

REACTIONS (7)
  - DRUG INTERACTION [None]
  - SKIN EXFOLIATION [None]
  - SCAB [None]
  - DRY SKIN [None]
  - PRURITUS [None]
  - RASH MACULAR [None]
  - RASH [None]
